FAERS Safety Report 26196029 (Version 2)
Quarter: 2025Q4

REPORT INFORMATION
  Report Type: Spontaneous
  Country: GB (occurrence: GB)
  Receive Date: 20251224
  Receipt Date: 20251226
  Transmission Date: 20260117
  Serious: Yes (Hospitalization)
  Sender: MDD OPERATIONS
  Company Number: GB-MDD US Operations-MDD202512-005240

PATIENT
  Age: 75 Year
  Sex: Male

DRUGS (2)
  1. APOMORPHINE HYDROCHLORIDE [Suspect]
     Active Substance: APOMORPHINE HYDROCHLORIDE
     Indication: Parkinson^s disease
     Dosage: NOT PROVIDED
  2. Lanctus [Concomitant]
     Indication: Type 2 diabetes mellitus
     Dosage: 40 UNITS OF LANTUS ONCE A DAY

REACTIONS (1)
  - Hyperglycaemia [Unknown]
